FAERS Safety Report 8343705-2 (Version None)
Quarter: 2012Q2

REPORT INFORMATION
  Report Type: 
  Country: None (occurrence: None)
  Receive Date: 20120508
  Receipt Date: 20110114
  Transmission Date: 20120825
  Serious: Yes (Other)
  Sender: FDA-Public Use
  Company Number: TR-RANBAXY-2011R1-41163

PATIENT
  Age: 23 Month
  Sex: Male

DRUGS (1)
  1. PHENOBARBITAL TAB [Suspect]
     Indication: FEBRILE CONVULSION
     Dosage: UNK
     Route: 065

REACTIONS (2)
  - RICKETS [None]
  - VITAMIN D DEFICIENCY [None]
